FAERS Safety Report 10662702 (Version 1)
Quarter: 2014Q4

REPORT INFORMATION
  Report Type: Spontaneous
  Country: US (occurrence: US)
  Receive Date: 20141218
  Receipt Date: 20141218
  Transmission Date: 20150529
  Serious: Yes (Other)
  Sender: FDA-Public Use
  Company Number: US-ASTRAZENECA-2014SE96638

PATIENT
  Age: 62 Year
  Sex: Male
  Weight: 81.6 kg

DRUGS (10)
  1. NEXIUM [Suspect]
     Active Substance: ESOMEPRAZOLE MAGNESIUM
     Indication: GASTROOESOPHAGEAL REFLUX DISEASE
     Route: 048
     Dates: start: 2001
  2. FINASTERIDE. [Concomitant]
     Active Substance: FINASTERIDE
     Indication: DYSURIA
     Dates: start: 2014
  3. PHENAZOPYRIDE [Concomitant]
     Indication: URINARY TRACT DISORDER
     Route: 048
     Dates: start: 2008, end: 201408
  4. RADIATION THERAPY [Concomitant]
     Active Substance: RADIATION THERAPY
     Dates: start: 2008, end: 2009
  5. LOSARTAN [Concomitant]
     Active Substance: LOSARTAN
     Indication: BLOOD PRESSURE ABNORMAL
     Dates: start: 2014
  6. PRAVASTATIN [Concomitant]
     Active Substance: PRAVASTATIN\PRAVASTATIN SODIUM
     Dates: start: 2014
  7. PROBIOTICS [Concomitant]
     Active Substance: PROBIOTICS NOS
     Indication: GASTROINTESTINAL DISORDER
     Dosage: DAILY
     Route: 048
     Dates: start: 201411
  8. FINASTERIDE. [Concomitant]
     Active Substance: FINASTERIDE
     Indication: BLADDER DISORDER
     Dates: start: 2014
  9. SENNAKOT [Concomitant]
     Indication: CONSTIPATION
     Route: 048
     Dates: start: 2009
  10. ALCOHOL. [Concomitant]
     Active Substance: ALCOHOL

REACTIONS (30)
  - Retinal detachment [Unknown]
  - Blindness unilateral [Not Recovered/Not Resolved]
  - Eye inflammation [Unknown]
  - Bladder disorder [Not Recovered/Not Resolved]
  - Constipation [Not Recovered/Not Resolved]
  - Drug dispensing error [Unknown]
  - Lens disorder [Unknown]
  - Lens dislocation [Unknown]
  - Ejaculation failure [Not Recovered/Not Resolved]
  - Diarrhoea [Recovered/Resolved]
  - Erectile dysfunction [Not Recovered/Not Resolved]
  - Micturition disorder [Not Recovered/Not Resolved]
  - Urinary incontinence [Not Recovered/Not Resolved]
  - General physical health deterioration [Not Recovered/Not Resolved]
  - Oral discomfort [Unknown]
  - Aspermia [Not Recovered/Not Resolved]
  - Ureteral disorder [Not Recovered/Not Resolved]
  - Pain in extremity [Unknown]
  - Eye disorder [Not Recovered/Not Resolved]
  - Blood cholesterol increased [Unknown]
  - Vision blurred [Not Recovered/Not Resolved]
  - Prostate cancer [Recovered/Resolved with Sequelae]
  - Eye injury [Recovered/Resolved with Sequelae]
  - Gastrooesophageal reflux disease [Unknown]
  - Hearing impaired [Unknown]
  - Road traffic accident [Not Recovered/Not Resolved]
  - Throat irritation [Unknown]
  - Drug dose omission [Unknown]
  - Hypertension [Not Recovered/Not Resolved]
  - Spinal cord disorder [Not Recovered/Not Resolved]

NARRATIVE: CASE EVENT DATE: 2003
